FAERS Safety Report 11658732 (Version 15)
Quarter: 2020Q3

REPORT INFORMATION
  Report Type: Report from Study
  Country: US (occurrence: US)
  Receive Date: 20151026
  Receipt Date: 20200803
  Transmission Date: 20201102
  Serious: Yes (Other)
  Sender: FDA-Public Use
  Company Number: PHHY2015US005630

PATIENT
  Age: 33 Year
  Sex: Female

DRUGS (1)
  1. GILENYA [Suspect]
     Active Substance: FINGOLIMOD HYDROCHLORIDE
     Indication: MULTIPLE SCLEROSIS
     Dosage: QD
     Route: 048

REACTIONS (7)
  - Alopecia [Not Recovered/Not Resolved]
  - Delivery [Unknown]
  - Pain in extremity [Not Recovered/Not Resolved]
  - Normal newborn [Unknown]
  - Vitamin D deficiency [Not Recovered/Not Resolved]
  - Maternal exposure during pregnancy [Unknown]
  - Flushing [Recovered/Resolved]

NARRATIVE: CASE EVENT DATE: 201406
